FAERS Safety Report 5679127-2 (Version None)
Quarter: 2008Q1

REPORT INFORMATION
  Report Type: 
  Country: None (occurrence: None)
  Receive Date: 20080325
  Receipt Date: 20080319
  Transmission Date: 20080703
  Serious: Yes (Hospitalization, Other)
  Sender: FDA-Public Use
  Company Number: US-MERCK-0802USA04453

PATIENT
  Sex: Female

DRUGS (3)
  1. VYTORIN [Suspect]
     Indication: HYPERCHOLESTEROLAEMIA
     Route: 048
  2. HYDRODIURIL [Concomitant]
     Route: 065
  3. PREMARIN [Concomitant]
     Route: 065

REACTIONS (2)
  - LIPIDS ABNORMAL [None]
  - PANCREATITIS [None]
